FAERS Safety Report 17940097 (Version 1)
Quarter: 2020Q2

REPORT INFORMATION
  Report Type: Spontaneous
  Country: US (occurrence: US)
  Receive Date: 20200625
  Receipt Date: 20200625
  Transmission Date: 20200714
  Serious: Yes (Other)
  Sender: FDA-Public Use
  Company Number: US-SA-2020SA159108

PATIENT

DRUGS (1)
  1. ROLAIDS ULTRA STRENGTH FRUIT [Suspect]
     Active Substance: CALCIUM CARBONATE\MAGNESIUM HYDROXIDE
     Indication: DYSPEPSIA
     Route: 048

REACTIONS (6)
  - Toothache [Unknown]
  - Product quality issue [Unknown]
  - Product residue present [Unknown]
  - Choking [Unknown]
  - Pain in jaw [Unknown]
  - Aspiration [Unknown]
